FAERS Safety Report 8835390 (Version 1)
Quarter: 2012Q4

REPORT INFORMATION
  Report Type: 
  Country: FR (occurrence: FR)
  Receive Date: 20121011
  Receipt Date: 20121011
  Transmission Date: 20130627
  Serious: Yes (Hospitalization)
  Sender: FDA-Public Use
  Company Number: FR-ROCHE-1141314

PATIENT
  Age: 61 Year
  Sex: Female

DRUGS (16)
  1. AVASTIN [Suspect]
     Indication: AGE-RELATED MACULAR DEGENERATION
     Route: 050
     Dates: start: 20120614
  2. AMLOR [Suspect]
     Indication: HYPERTENSION
     Route: 048
     Dates: start: 20120606
  3. TROPICAMIDE [Suspect]
     Indication: AGE-RELATED MACULAR DEGENERATION
     Route: 047
     Dates: start: 20120614
  4. OLOPATADINE HYDROCHLORIDE [Suspect]
     Indication: AGE-RELATED MACULAR DEGENERATION
     Route: 047
  5. TOBRADEX [Concomitant]
     Route: 047
     Dates: start: 20120423, end: 20120511
  6. INDOCOLLYRE [Concomitant]
     Route: 047
     Dates: start: 20120423, end: 20120523
  7. IKOREL [Concomitant]
  8. COAPROVEL [Concomitant]
  9. ATENOLOL [Concomitant]
  10. PLAVIX [Concomitant]
  11. TRINIPATCH [Concomitant]
  12. VASTAREL [Concomitant]
  13. LYRICA [Concomitant]
  14. PIASCLEDINE (FRANCE) [Concomitant]
  15. EZETROL [Concomitant]
  16. XATRAL [Concomitant]

REACTIONS (3)
  - Drug eruption [Recovered/Resolved]
  - Renal failure acute [None]
  - Urosepsis [None]
